FAERS Safety Report 13333461 (Version 1)
Quarter: 2017Q1

REPORT INFORMATION
  Report Type: Spontaneous
  Country: US (occurrence: US)
  Receive Date: 20170314
  Receipt Date: 20170314
  Transmission Date: 20170428
  Serious: No
  Sender: FDA-Public Use
  Company Number: US-TEVA-735334ACC

PATIENT
  Age: 90 Year
  Sex: Female
  Weight: 45.4 kg

DRUGS (1)
  1. RISEDRONATE SODIUM DELAYED-RELEASE [Suspect]
     Active Substance: RISEDRONATE SODIUM
     Indication: BONE DENSITY ABNORMAL
     Dates: start: 20161116

REACTIONS (1)
  - Diarrhoea [Unknown]

NARRATIVE: CASE EVENT DATE: 20161118
